FAERS Safety Report 4920102-0 (Version None)
Quarter: 2006Q1

REPORT INFORMATION
  Report Type: 
  Country: None (occurrence: None)
  Receive Date: 20060223
  Receipt Date: 20060214
  Transmission Date: 20060701
  Serious: Yes (Life-Threatening)
  Sender: FDA-Public Use
  Company Number: JP-JNJFOC-20050603215

PATIENT
  Sex: Male
  Weight: 66 kg

DRUGS (27)
  1. REMICADE [Suspect]
     Route: 042
  2. REMICADE [Suspect]
     Route: 042
  3. REMICADE [Suspect]
     Indication: RHEUMATOID ARTHRITIS
     Route: 042
  4. RHEUMATREX [Suspect]
     Route: 048
  5. RHEUMATREX [Suspect]
     Indication: RHEUMATOID ARTHRITIS
     Route: 048
  6. COTRIM [Suspect]
  7. COTRIM [Suspect]
     Indication: DRUG USE FOR UNKNOWN INDICATION
  8. NSAIDS [Suspect]
     Indication: DRUG USE FOR UNKNOWN INDICATION
     Route: 048
  9. RELIFEN [Concomitant]
     Indication: PAIN
     Route: 048
  10. DAONIL [Concomitant]
     Indication: DIABETES MELLITUS
     Route: 048
  11. EUGLUCON [Concomitant]
  12. BASEN [Concomitant]
     Indication: DIABETES MELLITUS
     Route: 048
  13. MAINROL [Concomitant]
     Indication: HYPERTENSION
     Route: 048
  14. MAINTATE [Concomitant]
  15. LENIMEC [Concomitant]
     Indication: HYPERTENSION
     Route: 048
  16. RENIVASE [Concomitant]
  17. SIGMART [Concomitant]
     Dosage: 3 TABS
     Route: 048
  18. SIGMART [Concomitant]
     Indication: ANGINA PECTORIS
     Route: 048
  19. ANGINAL [Concomitant]
     Indication: ANGINA PECTORIS
     Route: 048
  20. PERSANTIN [Concomitant]
  21. ISOSORBIDE MONONITRATE [Concomitant]
     Indication: ANGINA PECTORIS
     Route: 048
  22. ASPIRIN [Concomitant]
     Indication: ANGINA PECTORIS
     Route: 048
  23. ISONIAZID [Concomitant]
     Indication: ANTIBIOTIC PROPHYLAXIS
     Route: 048
  24. PYDOXAL [Concomitant]
  25. MUCOSTA [Concomitant]
     Indication: GASTRITIS
     Route: 048
  26. GASTER D [Concomitant]
     Route: 048
  27. GASTER D [Concomitant]
     Indication: GASTRITIS
     Route: 048

REACTIONS (4)
  - ORAL INTAKE REDUCED [None]
  - PNEUMOCYSTIS JIROVECI PNEUMONIA [None]
  - RASH GENERALISED [None]
  - STOMACH DISCOMFORT [None]
